FAERS Safety Report 14415034 (Version 1)
Quarter: 2018Q1

REPORT INFORMATION
  Report Type: Spontaneous
  Country: US (occurrence: US)
  Receive Date: 20180118
  Receipt Date: 20180118
  Transmission Date: 20180509
  Serious: Yes (Hospitalization)
  Sender: FDA-Public Use
  Company Number: None

PATIENT
  Age: 53 Year
  Sex: Male
  Weight: 132.77 kg

DRUGS (2)
  1. ERLOTINIB [Suspect]
     Active Substance: ERLOTINIB
     Indication: LUNG CANCER METASTATIC
     Route: 048
     Dates: start: 20170811, end: 20171104
  2. ENOXAPARIN [Suspect]
     Active Substance: ENOXAPARIN
     Indication: PULMONARY EMBOLISM
     Route: 058
     Dates: start: 20170726, end: 20171106

REACTIONS (7)
  - Melaena [None]
  - Haemoglobin decreased [None]
  - Ulcer [None]
  - Gastritis [None]
  - Dizziness [None]
  - Gastrointestinal haemorrhage [None]
  - Dyspnoea exertional [None]

NARRATIVE: CASE EVENT DATE: 20171106
